FAERS Safety Report 6023671-5 (Version None)
Quarter: 2008Q4

REPORT INFORMATION
  Report Type: 
  Country: None (occurrence: None)
  Receive Date: 20081223
  Receipt Date: 20081210
  Transmission Date: 20090506
  Serious: Yes (Life-Threatening, Other)
  Sender: FDA-Public Use
  Company Number: 2008S1021257

PATIENT
  Age: 54 Year
  Sex: Male
  Weight: 82 kg

DRUGS (3)
  1. DEXTROPROPOXPHENE PARACETAMOL MERCK (APOREX) [Suspect]
     Indication: TENDONITIS
     Dates: start: 20081125, end: 20081125
  2. KETOPROFEN [Suspect]
     Indication: TENDONITIS
     Dates: start: 20081124, end: 20081125
  3. DIANTALVIC [Concomitant]

REACTIONS (1)
  - ANGIOEDEMA [None]
